FAERS Safety Report 5158399-7 (Version None)
Quarter: 2006Q4

REPORT INFORMATION
  Report Type: 
  Country: None (occurrence: None)
  Receive Date: 20061128
  Receipt Date: 20060915
  Transmission Date: 20070319
  Serious: Yes (Hospitalization)
  Sender: FDA-Public Use
  Company Number: PHNR2006AU01269

PATIENT
  Age: 74 Year
  Sex: Female

DRUGS (7)
  1. FOLIC ACID [Concomitant]
     Dosage: 5 MG, UNK
  2. ASPIRIN [Concomitant]
     Dosage: 100 MG, UNK
  3. EPILIM [Concomitant]
     Dosage: 200 MG, TID
  4. RAMIPRIL [Concomitant]
     Dosage: 2.5 MG, UNK
  5. MOVICOL [Concomitant]
     Dosage: ONCE DAILY
  6. CATAPRES [Concomitant]
     Dosage: 25 MCG AT NIGHTIME
  7. CLOZARIL [Suspect]
     Indication: SCHIZOPHRENIA
     Dosage: 125 MG, UNK
     Route: 048
     Dates: start: 20051026

REACTIONS (4)
  - CIRCULATORY COLLAPSE [None]
  - LOSS OF CONSCIOUSNESS [None]
  - LOWER RESPIRATORY TRACT INFECTION [None]
  - URINARY TRACT INFECTION [None]
